FAERS Safety Report 25844768 (Version 1)
Quarter: 2025Q3

REPORT INFORMATION
  Report Type: Spontaneous
  Country: US (occurrence: US)
  Receive Date: 20250925
  Receipt Date: 20250925
  Transmission Date: 20251020
  Serious: Yes (Life-Threatening, Other)
  Sender: NOVARTIS
  Company Number: US-002147023-NVSC2025US147888

PATIENT
  Age: 53 Year
  Sex: Female

DRUGS (1)
  1. COSENTYX [Suspect]
     Active Substance: SECUKINUMAB
     Indication: Product used for unknown indication
     Route: 065

REACTIONS (4)
  - Feeling abnormal [Unknown]
  - Seizure [Unknown]
  - Myocardial infarction [Unknown]
  - Pain [Unknown]
